FAERS Safety Report 7924471-9 (Version None)
Quarter: 2011Q4

REPORT INFORMATION
  Report Type: 
  Country: None (occurrence: None)
  Receive Date: 20111117
  Receipt Date: 20110322
  Transmission Date: 20120403
  Serious: No
  Sender: FDA-Public Use
  Company Number: US-AMGEN-USASP2011015494

PATIENT
  Age: 40 Year
  Sex: Male
  Weight: 103 kg

DRUGS (7)
  1. PAXIL [Concomitant]
     Dosage: 10 UNK, UNK
  2. INDERAL [Concomitant]
     Dosage: 20 MG, UNK
  3. NAPROXEN (ALEVE) [Concomitant]
     Dosage: 220 MG, UNK
  4. ENBREL [Suspect]
     Indication: PRODUCT USED FOR UNKNOWN INDICATION
     Dosage: 50 MG, QWK
     Route: 058
     Dates: start: 20010101
  5. CENTRUM SILVER                     /01292501/ [Concomitant]
  6. CARDURA [Concomitant]
     Dosage: 4 MG, UNK
  7. ACIPHEX [Concomitant]
     Dosage: 20 MG, UNK

REACTIONS (4)
  - PARAESTHESIA [None]
  - MUSCLE SPASMS [None]
  - DISEASE PROGRESSION [None]
  - ASTHENIA [None]
